FAERS Safety Report 10080555 (Version 4)
Quarter: 2014Q2

REPORT INFORMATION
  Report Type: Spontaneous
  Country: BR (occurrence: BR)
  Receive Date: 20140416
  Receipt Date: 20140613
  Transmission Date: 20141212
  Serious: Yes (Hospitalization, Other)
  Sender: FDA-Public Use
  Company Number: BR-ASTRAZENECA-2014SE24883

PATIENT
  Age: 74 Year
  Sex: Female
  Weight: 60 kg

DRUGS (10)
  1. ATACAND COMB [Suspect]
     Indication: HYPERTENSION
     Dosage: 16/2.5 MG, DAILY
     Route: 048
     Dates: start: 2011, end: 2013
  2. ATACAND [Suspect]
     Indication: HYPERTENSION
     Route: 048
     Dates: start: 2013
  3. ATACAND HCT [Suspect]
     Dosage: 16/12.5 MG
     Route: 048
     Dates: start: 2014
  4. ANGIPRESS CD (ATENOLOL + CHLORTHALIDONE) [Suspect]
     Indication: HYPERTENSION
     Dosage: DAILY
     Route: 048
     Dates: start: 2011
  5. CRESTOR [Suspect]
     Indication: BLOOD CHOLESTEROL ABNORMAL
     Route: 048
     Dates: start: 2013
  6. SPLENDIL [Suspect]
     Indication: CARDIAC FIBRILLATION
     Route: 048
     Dates: start: 2013, end: 201405
  7. SPLENDIL [Suspect]
     Indication: CARDIAC FIBRILLATION
     Route: 048
  8. CLOPIDOGREL [Concomitant]
     Indication: BLOOD PRESSURE FLUCTUATION
     Dosage: DAILY
     Route: 048
     Dates: start: 2014
  9. AMIODARONE [Concomitant]
     Indication: BLOOD PRESSURE FLUCTUATION
     Dates: start: 2014, end: 201405
  10. AMIODARONE [Concomitant]
     Indication: BLOOD PRESSURE FLUCTUATION

REACTIONS (4)
  - Blood pressure fluctuation [Not Recovered/Not Resolved]
  - Cardiac fibrillation [Recovered/Resolved]
  - Blood cholesterol abnormal [Recovered/Resolved]
  - Off label use [Not Recovered/Not Resolved]
